FAERS Safety Report 4689385-9 (Version None)
Quarter: 2005Q2

REPORT INFORMATION
  Report Type: 
  Country: None (occurrence: None)
  Receive Date: 20050608
  Receipt Date: 20050211
  Transmission Date: 20051028
  Serious: No
  Sender: FDA-Public Use
  Company Number: 2005-BP-02220BP

PATIENT
  Sex: Male

DRUGS (2)
  1. SPIRIVA [Suspect]
     Indication: CHRONIC OBSTRUCTIVE PULMONARY DISEASE
     Dosage: 18 MCG (18 MCG), IH
     Route: 055
     Dates: start: 20050101
  2. SPIRIVA [Suspect]

REACTIONS (4)
  - DRY MOUTH [None]
  - DRY THROAT [None]
  - POLLAKIURIA [None]
  - SLEEP DISORDER [None]
